FAERS Safety Report 5240903-1 (Version None)
Quarter: 2007Q1

REPORT INFORMATION
  Report Type: 
  Country: None (occurrence: None)
  Receive Date: 20061201
  Receipt Date: 20060906
  Transmission Date: 20070707
  Serious: No
  Sender: FDA-Public Use
  Company Number: 2006PV020813

PATIENT
  Age: 66 Year
  Sex: Female
  Weight: 140.1615 kg

DRUGS (13)
  1. BYETTA [Suspect]
     Indication: DIABETES MELLITUS NON-INSULIN-DEPENDENT
     Dosage: SEE IMAGE
     Route: 058
     Dates: start: 20060508, end: 20060603
  2. BYETTA [Suspect]
     Indication: DIABETES MELLITUS NON-INSULIN-DEPENDENT
     Dosage: SEE IMAGE
     Route: 058
     Dates: start: 20060604, end: 20060614
  3. LASIX [Concomitant]
  4. ALDACTONE [Concomitant]
  5. LENOXIL [Concomitant]
  6. PROPAFENONE HCL [Concomitant]
  7. ACTONEL [Concomitant]
  8. WARFARIN SODIUM [Concomitant]
  9. LEXAPRO [Concomitant]
  10. MOBIC [Concomitant]
  11. CRESTOR [Concomitant]
  12. POLY-IRON [Concomitant]
  13. LEVOTHYROXINE SODIUM [Concomitant]

REACTIONS (3)
  - CONDITION AGGRAVATED [None]
  - OEDEMA PERIPHERAL [None]
  - WEIGHT INCREASED [None]
